FAERS Safety Report 7399917-8 (Version None)
Quarter: 2011Q2

REPORT INFORMATION
  Report Type: 
  Country: None (occurrence: None)
  Receive Date: 20110407
  Receipt Date: 20110324
  Transmission Date: 20111010
  Serious: Yes (Other)
  Sender: FDA-Public Use
  Company Number: JP-JNJFOC-20110400098

PATIENT

DRUGS (25)
  1. DOXORUBICIN HYDROCHLORIDE [Suspect]
     Indication: B-CELL LYMPHOMA
     Route: 042
  2. VINCRISTINE [Suspect]
     Route: 065
  3. RITUXIMAB [Suspect]
     Route: 065
  4. DOXORUBICIN HYDROCHLORIDE [Suspect]
     Route: 042
  5. CYCLOPHOSPHAMIDE [Suspect]
     Indication: B-CELL LYMPHOMA
     Route: 065
  6. CYCLOPHOSPHAMIDE [Suspect]
     Route: 065
  7. CYCLOPHOSPHAMIDE [Suspect]
     Route: 065
  8. PREDNISONE [Suspect]
     Dosage: 2 MG/DAY
     Route: 065
  9. RITUXIMAB [Suspect]
     Route: 065
  10. RITUXIMAB [Suspect]
     Route: 065
  11. CYCLOPHOSPHAMIDE [Suspect]
     Route: 065
  12. CYCLOPHOSPHAMIDE [Suspect]
     Route: 065
  13. VINCRISTINE [Suspect]
     Indication: B-CELL LYMPHOMA
     Dosage: TO A MAXIMUM OF 2 MG/DAY
     Route: 065
  14. VINCRISTINE [Suspect]
     Route: 065
  15. PREDNISONE [Suspect]
     Dosage: 2 MG/DAY
     Route: 065
  16. RITUXIMAB [Suspect]
     Indication: B-CELL LYMPHOMA
     Route: 065
  17. DOXORUBICIN HYDROCHLORIDE [Suspect]
     Route: 042
  18. VINCRISTINE [Suspect]
     Route: 065
  19. VINCRISTINE [Suspect]
     Route: 065
  20. PREDNISONE [Suspect]
     Indication: B-CELL LYMPHOMA
     Dosage: 2 MG/DAY
     Route: 065
  21. PREDNISONE [Suspect]
     Dosage: 2 MG/DAY
     Route: 065
  22. PREDNISONE [Suspect]
     Dosage: 2 MG/DAY
     Route: 065
  23. RITUXIMAB [Suspect]
     Route: 065
  24. DOXORUBICIN HYDROCHLORIDE [Suspect]
     Route: 042
  25. DOXORUBICIN HYDROCHLORIDE [Suspect]
     Route: 042

REACTIONS (2)
  - HEPATITIS B DNA INCREASED [None]
  - OFF LABEL USE [None]
